FAERS Safety Report 10593677 (Version 2)
Quarter: 2015Q1

REPORT INFORMATION
  Report Type: Spontaneous
  Country: US (occurrence: US)
  Receive Date: 20141119
  Receipt Date: 20150219
  Transmission Date: 20150720
  Serious: No
  Sender: FDA-Public Use
  Company Number: US-BIOMARINAP-US-2014-104453

PATIENT
  Sex: Male
  Weight: 24 kg

DRUGS (1)
  1. VIMIZIM [Suspect]
     Active Substance: ELOSULFASE ALFA
     Indication: MUCOPOLYSACCHARIDOSIS IV
     Dosage: 50 MG, QW
     Route: 042
     Dates: start: 20140317

REACTIONS (2)
  - Oropharyngeal pain [Unknown]
  - Cough [Unknown]
